FAERS Safety Report 6399000-4 (Version None)
Quarter: 2009Q4

REPORT INFORMATION
  Report Type: 
  Country: None (occurrence: None)
  Receive Date: 20091013
  Receipt Date: 20090929
  Transmission Date: 20100525
  Serious: Yes (Death, Life-Threatening)
  Sender: FDA-Public Use
  Company Number: JP-PFIZER INC-2009252823

PATIENT
  Age: 89 Year

DRUGS (1)
  1. ZITHROMAC SR [Suspect]
     Indication: PNEUMONIA
     Dosage: 2 G, UNK
     Route: 048

REACTIONS (1)
  - RENAL FAILURE [None]
